FAERS Safety Report 9188939 (Version 1)
Quarter: 2013Q1

REPORT INFORMATION
  Report Type: Spontaneous
  Country: DE (occurrence: DE)
  Receive Date: 20130326
  Receipt Date: 20130326
  Transmission Date: 20140127
  Serious: Yes (Hospitalization)
  Sender: FDA-Public Use
  Company Number: DE-ELI_LILLY_AND_COMPANY-DE201303004732

PATIENT
  Age: 68 Year
  Sex: Female

DRUGS (6)
  1. FORSTEO [Suspect]
     Indication: OSTEOPOROSIS
     Dosage: UNK
     Route: 058
     Dates: start: 20130111
  2. PALLADON [Concomitant]
  3. MYOSON [Concomitant]
  4. SIFROL [Concomitant]
  5. MADOPAR [Concomitant]
  6. BISOPROLOL [Concomitant]

REACTIONS (1)
  - Neurological decompensation [Not Recovered/Not Resolved]
